FAERS Safety Report 21124050 (Version 1)
Quarter: 2022Q3

REPORT INFORMATION
  Report Type: Spontaneous
  Country: US (occurrence: US)
  Receive Date: 20220725
  Receipt Date: 20220725
  Transmission Date: 20221027
  Serious: Yes (Death, Other)
  Sender: FDA-Public Use
  Company Number: US-AMGEN-USASP2022123936

PATIENT
  Age: 46 Year
  Sex: Male

DRUGS (1)
  1. RITUXIMAB [Suspect]
     Active Substance: RITUXIMAB
     Indication: Antiphospholipid syndrome
     Route: 065

REACTIONS (4)
  - Death [Fatal]
  - Septic shock [Unknown]
  - Thrombotic microangiopathy [Unknown]
  - Off label use [Unknown]
